FAERS Safety Report 5570519-9 (Version None)
Quarter: 2007Q4

REPORT INFORMATION
  Report Type: 
  Country: None (occurrence: None)
  Receive Date: 20071221
  Receipt Date: 20071126
  Transmission Date: 20080405
  Serious: No
  Sender: FDA-Public Use
  Company Number: US-BRISTOL-MYERS SQUIBB COMPANY-13992789

PATIENT
  Age: 16 Year
  Sex: Female

DRUGS (7)
  1. ORENCIA [Suspect]
     Dates: start: 20071115
  2. ARTHROTEC [Concomitant]
     Route: 048
  3. MULTI-VITAMIN [Concomitant]
  4. PRED FORTE [Concomitant]
  5. MTX [Concomitant]
     Dates: end: 20071030
  6. HUMIRA [Concomitant]
     Dates: end: 20071030
  7. PREDNISONE [Concomitant]
     Dates: end: 20071030

REACTIONS (8)
  - ANXIETY [None]
  - DEPOSIT EYE [None]
  - FATIGUE [None]
  - FEELING ABNORMAL [None]
  - IRRITABILITY [None]
  - OFF LABEL USE [None]
  - RASH [None]
  - UVEITIS [None]
